FAERS Safety Report 18957110 (Version 1)
Quarter: 2021Q1

REPORT INFORMATION
  Report Type: Spontaneous
  Country: US (occurrence: US)
  Receive Date: 20210302
  Receipt Date: 20210302
  Transmission Date: 20210420
  Serious: No
  Sender: FDA-Public Use
  Company Number: US-USWM, LLC-UWM202012-000062

PATIENT
  Age: 64 Year
  Sex: Female

DRUGS (3)
  1. LUCEMYRA [Suspect]
     Active Substance: LOFEXIDINE
     Dosage: 2 PILLS PER DOSE ON DAY 8
  2. LUCEMYRA [Suspect]
     Active Substance: LOFEXIDINE
     Indication: PRODUCT USED FOR UNKNOWN INDICATION
     Dosage: FULL DOSE FOR THE FIRST 7 DAYS
     Dates: start: 20201125
  3. LUCEMYRA [Suspect]
     Active Substance: LOFEXIDINE
     Dosage: 1 PILL PER DOSE ON DAY 9

REACTIONS (4)
  - Dizziness [Unknown]
  - Drug ineffective [Unknown]
  - Drug withdrawal syndrome [Unknown]
  - Insomnia [Unknown]

NARRATIVE: CASE EVENT DATE: 202011
